FAERS Safety Report 8916519 (Version 1)
Quarter: 2012Q4

REPORT INFORMATION
  Report Type: 
  Country: EG (occurrence: EG)
  Receive Date: 20121120
  Receipt Date: 20121120
  Transmission Date: 20130627
  Serious: Yes (Other)
  Sender: FDA-Public Use
  Company Number: EG-ROCHE-711965

PATIENT
  Age: 76 Year
  Sex: Male

DRUGS (1)
  1. ROCEPHIN [Suspect]
     Indication: RESPIRATORY TRACT INFECTION
     Dosage: FREQUENCY: DAILY, DRUG REPORTED AS: ROCHEPHIN
     Route: 042

REACTIONS (1)
  - Renal impairment [Recovered/Resolved]
